FAERS Safety Report 17185131 (Version 3)
Quarter: 2023Q1

REPORT INFORMATION
  Report Type: Report from Study
  Country: US (occurrence: US)
  Receive Date: 20191220
  Receipt Date: 20230112
  Transmission Date: 20230418
  Serious: No
  Sender: FDA-Public Use
  Company Number: US-SHIRE-US201943085

PATIENT
  Age: 9 Year
  Sex: Male

DRUGS (2)
  1. IDURSULFASE [Suspect]
     Active Substance: IDURSULFASE
     Indication: Mucopolysaccharidosis II
     Dosage: 0.57 MILLIGRAM, 1/WEEK
     Route: 042
     Dates: start: 20141214
  2. IDURSULFASE [Suspect]
     Active Substance: IDURSULFASE
     Dosage: UNK
     Route: 042
     Dates: start: 20150113

REACTIONS (4)
  - Nasal congestion [Unknown]
  - Viral infection [Unknown]
  - COVID-19 [Unknown]
  - Product dose omission issue [Not Recovered/Not Resolved]

NARRATIVE: CASE EVENT DATE: 20191201
